FAERS Safety Report 5119147-X (Version None)
Quarter: 2006Q3

REPORT INFORMATION
  Report Type: 
  Country: None (occurrence: None)
  Receive Date: 20060929
  Receipt Date: 20060929
  Transmission Date: 20061208
  Serious: Yes (Life-Threatening, Hospitalization, Other)
  Sender: FDA-Public Use
  Company Number: None

PATIENT
  Age: 57 Year
  Sex: Male

DRUGS (2)
  1. FUROSEMIDE [Suspect]
     Indication: CARDIAC FAILURE CONGESTIVE
     Dosage: 120 MG BID PO
     Route: 048
     Dates: start: 20051011, end: 20060329
  2. METOLAZONE [Suspect]
     Dosage: 5MG QD PO
     Route: 048
     Dates: start: 20060104, end: 20060403

REACTIONS (1)
  - HYPOKALAEMIA [None]
